FAERS Safety Report 4316323-0 (Version None)
Quarter: 2004Q1

REPORT INFORMATION
  Report Type: 
  Country: None (occurrence: None)
  Receive Date: 20040312
  Receipt Date: 20040213
  Transmission Date: 20041129
  Serious: Yes (Death)
  Sender: FDA-Public Use
  Company Number: US-BRISTOL-MYERS SQUIBB COMPANY-12505186

PATIENT
  Age: 48 Year
  Sex: Female

DRUGS (1)
  1. MEGACE [Suspect]
     Dosage: ORAL SOLUTION
     Route: 048

REACTIONS (1)
  - DEATH [None]
